FAERS Safety Report 9090634 (Version 1)
Quarter: 2013Q1

REPORT INFORMATION
  Report Type: Spontaneous
  Country: US (occurrence: US)
  Receive Date: 20130131
  Receipt Date: 20130131
  Transmission Date: 20140127
  Serious: Yes (Other)
  Sender: FDA-Public Use
  Company Number: US-BRISTOL-MYERS SQUIBB COMPANY-17318544

PATIENT
  Age: 59 Year
  Sex: Male
  Weight: 95.24 kg

DRUGS (1)
  1. ERBITUX [Suspect]
     Indication: RECTAL CANCER
     Dosage: INTER ON SEP12,RESTARTED ON DEC12,6 OR 7 WEEKS TREATMENTS

REACTIONS (5)
  - Ileostomy [Unknown]
  - Dermatitis acneiform [Unknown]
  - Vomiting [Unknown]
  - Diarrhoea [Unknown]
  - Weight decreased [Unknown]
